FAERS Safety Report 10090120 (Version 1)
Quarter: 2014Q2

REPORT INFORMATION
  Report Type: Spontaneous
  Country: US (occurrence: US)
  Receive Date: 20140421
  Receipt Date: 20140421
  Transmission Date: 20141212
  Serious: No
  Sender: FDA-Public Use
  Company Number: US-PFIZER INC-2014110529

PATIENT
  Sex: Male

DRUGS (1)
  1. LYRICA [Suspect]
     Dosage: 100 MG, 3X/DAY

REACTIONS (4)
  - Dizziness [Unknown]
  - Peripheral swelling [Unknown]
  - Blood pressure increased [Unknown]
  - Malaise [Unknown]
